FAERS Safety Report 22118660 (Version 4)
Quarter: 2023Q4

REPORT INFORMATION
  Report Type: Spontaneous
  Country: US (occurrence: US)
  Receive Date: 20230321
  Receipt Date: 20231102
  Transmission Date: 20240110
  Serious: Yes (Other)
  Sender: FDA-Public Use
  Company Number: US-SUN PHARMACEUTICAL INDUSTRIES LTD-2023R1-382024

PATIENT
  Sex: Female

DRUGS (2)
  1. XELPROS [Suspect]
     Active Substance: LATANOPROST
     Indication: Glaucoma
     Dosage: UNK
     Route: 065
  2. XELPROS [Suspect]
     Active Substance: LATANOPROST
     Indication: Cataract

REACTIONS (3)
  - Eye pain [Unknown]
  - Eye discharge [Unknown]
  - Therapy cessation [Unknown]
